FAERS Safety Report 16569485 (Version 3)
Quarter: 2019Q3

REPORT INFORMATION
  Report Type: Spontaneous
  Country: PL (occurrence: PL)
  Receive Date: 20190715
  Receipt Date: 20190730
  Transmission Date: 20191004
  Serious: Yes (Hospitalization, Other)
  Sender: FDA-Public Use
  Company Number: PL-TEVA-2019-PL-1077921

PATIENT
  Age: 10 Year
  Sex: Female

DRUGS (1)
  1. QUETIAPINE. [Suspect]
     Active Substance: QUETIAPINE
     Route: 065

REACTIONS (8)
  - Apathy [Unknown]
  - Confusional state [Unknown]
  - Intentional product use issue [Unknown]
  - Balance disorder [Unknown]
  - Child abuse [Unknown]
  - Product administered to patient of inappropriate age [Unknown]
  - Somnolence [Unknown]
  - Syncope [Unknown]
